FAERS Safety Report 10966340 (Version 6)
Quarter: 2015Q3

REPORT INFORMATION
  Report Type: Report from Study
  Country: IT (occurrence: IT)
  Receive Date: 20150330
  Receipt Date: 20150716
  Transmission Date: 20151125
  Serious: Yes (Death, Hospitalization)
  Sender: FDA-Public Use
  Company Number: IT-ROCHE-1550383

PATIENT
  Age: 81 Year
  Sex: Male
  Weight: 70 kg

DRUGS (16)
  1. OBINUTUZUMAB [Suspect]
     Active Substance: OBINUTUZUMAB
     Indication: DIFFUSE LARGE B-CELL LYMPHOMA
     Dosage: MOST RECENT DOSE PRIOR TO EVENT ONSET 250ML AT DOSE CONCENTRATION 4MG/ML ON 18/JUN/2014
     Route: 042
     Dates: start: 20140327
  2. VINCRISTINE [Suspect]
     Active Substance: VINCRISTINE
     Indication: DIFFUSE LARGE B-CELL LYMPHOMA
     Dosage: MOST RECENT DOSE PRIOR TO EVENT ONSET 2MG ON 18/JUN/2014
     Route: 040
     Dates: start: 20140328
  3. LERCANIDIPINA [Concomitant]
     Active Substance: LERCANIDIPINE
     Indication: HYPERTENSION
     Route: 065
     Dates: start: 2009
  4. TRIMEBUTINA [Concomitant]
     Indication: ABDOMINAL PAIN
     Route: 065
     Dates: start: 20140721
  5. CYCLOPHOSPHAMIDE. [Suspect]
     Active Substance: CYCLOPHOSPHAMIDE
     Indication: DIFFUSE LARGE B-CELL LYMPHOMA
     Dosage: MOST RECENT DOSE PRIOR TO EVENT ONSET 1433MG ON 18/JUN/2014
     Route: 042
     Dates: start: 20140328
  6. VALSARTAN. [Concomitant]
     Active Substance: VALSARTAN
     Indication: HYPERTENSION
     Route: 065
     Dates: start: 2009
  7. DOXORUBICIN [Suspect]
     Active Substance: DOXORUBICIN
     Indication: DIFFUSE LARGE B-CELL LYMPHOMA
     Dosage: MOST RECENT DOSE PRIOR TO EVENT ONSET 50MG ON 18/JUN/2014
     Route: 042
     Dates: start: 20140328
  8. ACICLOVIR [Concomitant]
     Active Substance: ACYCLOVIR
     Dosage: ANTIVIRAL
     Route: 065
     Dates: start: 20140627
  9. PREDNISONE. [Suspect]
     Active Substance: PREDNISONE
     Indication: DIFFUSE LARGE B-CELL LYMPHOMA
     Dosage: MOST RECENT DOSE PRIOR TO EVENT ONSET 25MG ON 24/JUN/2014
     Route: 048
     Dates: start: 20140328
  10. ALLOPURINOL. [Concomitant]
     Active Substance: ALLOPURINOL
     Route: 065
     Dates: start: 2009
  11. CEFTRIAXONE. [Suspect]
     Active Substance: CEFTRIAXONE
     Indication: PNEUMONIA
     Dosage: 1 VIAL 1 GRAM/ML
     Route: 065
  12. CALCIJEX [Concomitant]
     Active Substance: CALCITRIOL
     Indication: RENAL OSTEODYSTROPHY
     Route: 065
     Dates: start: 20140311
  13. TROMETAMINA [Concomitant]
     Dosage: ANALGESIC
     Route: 065
     Dates: start: 20140721
  14. ASACOL [Concomitant]
     Active Substance: MESALAMINE
     Indication: ABDOMINAL PAIN
     Route: 065
     Dates: start: 20140721
  15. SIMVASTATINA [Concomitant]
     Active Substance: SIMVASTATIN
     Indication: BLOOD CHOLESTEROL
     Route: 065
     Dates: start: 2009
  16. LORANS [Concomitant]
     Active Substance: LORAZEPAM

REACTIONS (2)
  - Dyspnoea [Fatal]
  - Pneumonia [Recovered/Resolved]

NARRATIVE: CASE EVENT DATE: 20150305
